FAERS Safety Report 7416271-3 (Version None)
Quarter: 2011Q2

REPORT INFORMATION
  Report Type: 
  Country: None (occurrence: None)
  Receive Date: 20110414
  Receipt Date: 20110407
  Transmission Date: 20111010
  Serious: Yes (Death, Hospitalization)
  Sender: FDA-Public Use
  Company Number: A0921838A

PATIENT
  Age: 60 Year
  Sex: Female

DRUGS (4)
  1. ZOFRAN [Suspect]
     Indication: VOMITING
     Dosage: 8MG PER DAY
     Route: 048
     Dates: start: 20090101
  2. CHEMOTHERAPY [Concomitant]
  3. VALTREX [Suspect]
     Indication: VIRAL INFECTION
     Dosage: 500MG PER DAY
     Route: 048
     Dates: start: 20090101
  4. RADIATION [Concomitant]

REACTIONS (3)
  - LEUKAEMIA [None]
  - PNEUMONIA [None]
  - SEPSIS [None]
